FAERS Safety Report 17454296 (Version 1)
Quarter: 2020Q1

REPORT INFORMATION
  Report Type: Spontaneous
  Country: US (occurrence: US)
  Receive Date: 20200224
  Receipt Date: 20200224
  Transmission Date: 20200409
  Serious: No
  Sender: FDA-Public Use
  Company Number: None

PATIENT
  Age: 74 Year
  Sex: Female
  Weight: 64.2 kg

DRUGS (7)
  1. MULTIVITAMIN [Concomitant]
     Active Substance: VITAMINS
  2. PIQRAY [Suspect]
     Active Substance: ALPELISIB
     Indication: OESTROGEN RECEPTOR POSITIVE BREAST CANCER
     Route: 048
     Dates: start: 20190703, end: 20200224
  3. EXEMESTANE 25MG [Concomitant]
     Active Substance: EXEMESTANE
     Dates: start: 20191021, end: 20200122
  4. VIACTIV [Concomitant]
  5. SIMVASTATIN 10MG [Concomitant]
     Active Substance: SIMVASTATIN
  6. VITAMIN D3 3,000U [Concomitant]
  7. IBRANCE [Concomitant]
     Active Substance: PALBOCICLIB

REACTIONS (2)
  - Rash [None]
  - Therapy cessation [None]
